FAERS Safety Report 6218873-9 (Version None)
Quarter: 2009Q2

REPORT INFORMATION
  Report Type: 
  Country: None (occurrence: None)
  Receive Date: 20090608
  Receipt Date: 20090601
  Transmission Date: 20091009
  Serious: No
  Sender: FDA-Public Use
  Company Number: US-B.I. PHARMACEUTICALS,INC./RIDGEFIELD-2009-BP-06773BP

PATIENT
  Sex: Male

DRUGS (1)
  1. FLOMAX [Suspect]
     Indication: PROSTATE CANCER
     Dosage: .4MG
     Route: 048
     Dates: start: 20020101

REACTIONS (2)
  - CATARACT [None]
  - VISUAL IMPAIRMENT [None]
